FAERS Safety Report 8571196-5 (Version None)
Quarter: 2012Q3

REPORT INFORMATION
  Report Type: 
  Country: None (occurrence: None)
  Receive Date: 20120806
  Receipt Date: 20120803
  Transmission Date: 20120928
  Serious: No
  Sender: FDA-Public Use
  Company Number: US-PFIZER INC-2012189436

PATIENT
  Age: 27 Year
  Sex: Female
  Weight: 57.143 kg

DRUGS (4)
  1. CHANTIX [Suspect]
     Indication: SMOKING CESSATION THERAPY
     Dosage: 0.5 MG, 1X/DAY
     Route: 048
     Dates: start: 20120701, end: 20120701
  2. CHANTIX [Suspect]
     Dosage: UNK
     Route: 048
     Dates: start: 20120701, end: 20120701
  3. SUBOXONE [Concomitant]
     Dosage: UNK
  4. NEURONTIN [Concomitant]
     Dosage: UNK

REACTIONS (1)
  - MALAISE [None]
